FAERS Safety Report 4602587-2 (Version None)
Quarter: 2005Q1

REPORT INFORMATION
  Report Type: 
  Country: None (occurrence: None)
  Receive Date: 20050309
  Receipt Date: 20050228
  Transmission Date: 20050727
  Serious: Yes (Other)
  Sender: FDA-Public Use
  Company Number: 200510423DE

PATIENT
  Age: 78 Year
  Sex: Female

DRUGS (5)
  1. LANTUS [Suspect]
     Indication: DIABETES MELLITUS INSULIN-DEPENDENT
     Dates: start: 20010501
  2. CORDANUM [Concomitant]
  3. ATACAND HCT [Concomitant]
     Dosage: DOSE: 16 / 12.5
  4. INSIDON [Concomitant]
  5. NOVORAPID [Concomitant]
     Indication: DIABETES MELLITUS INSULIN-DEPENDENT
     Dates: start: 20010501

REACTIONS (4)
  - GASTROINTESTINAL DISORDER [None]
  - LARGE INTESTINE CARCINOMA [None]
  - RECTAL CANCER [None]
  - SMALL INTESTINE CARCINOMA [None]
